FAERS Safety Report 18813851 (Version 1)
Quarter: 2021Q1

REPORT INFORMATION
  Report Type: Spontaneous
  Country: GB (occurrence: GB)
  Receive Date: 20210201
  Receipt Date: 20210201
  Transmission Date: 20210419
  Serious: Yes (Other)
  Sender: FDA-Public Use
  Company Number: GB-ROCHE-2757032

PATIENT
  Age: 81 Year
  Sex: Female

DRUGS (6)
  1. CAPECITABINE. [Suspect]
     Active Substance: CAPECITABINE
     Indication: BREAST CANCER METASTATIC
     Dosage: FOLLOWED BY A 3?DAY BREAK
     Route: 048
     Dates: start: 20201113
  2. ADCAL (UNITED KINGDOM) [Concomitant]
     Active Substance: CALCIUM CARBONATE
  3. DIFFLAM [BENZYDAMINE] [Concomitant]
     Active Substance: BENZYDAMINE
  4. LOPERAMIDE [Concomitant]
     Active Substance: LOPERAMIDE
  5. METOCLOPRAMIDE. [Concomitant]
     Active Substance: METOCLOPRAMIDE
  6. XGEVA [Suspect]
     Active Substance: DENOSUMAB
     Indication: BREAST CANCER METASTATIC
     Route: 058
     Dates: start: 20200402

REACTIONS (14)
  - Fatigue [Not Recovered/Not Resolved]
  - Genital pain [Not Recovered/Not Resolved]
  - Contusion [Not Recovered/Not Resolved]
  - Palmar-plantar erythrodysaesthesia syndrome [Not Recovered/Not Resolved]
  - Pruritus genital [Unknown]
  - Blister [Unknown]
  - Genital erythema [Unknown]
  - Anal erythema [Unknown]
  - Pain in extremity [Unknown]
  - Proctalgia [Not Recovered/Not Resolved]
  - Anal pruritus [Unknown]
  - Tongue blistering [Unknown]
  - Lip blister [Not Recovered/Not Resolved]
  - Erythema [Not Recovered/Not Resolved]
